FAERS Safety Report 19178617 (Version 2)
Quarter: 2021Q2

REPORT INFORMATION
  Report Type: Report from Study
  Country: BR (occurrence: BR)
  Receive Date: 20210426
  Receipt Date: 20210617
  Transmission Date: 20210717
  Serious: Yes (Death, Other)
  Sender: FDA-Public Use
  Company Number: BR-BIOVITRUM-2021BR3981

PATIENT
  Sex: Female
  Weight: 2.5 kg

DRUGS (1)
  1. SYNAGIS [Suspect]
     Active Substance: PALIVIZUMAB
     Indication: BRONCHOPULMONARY DYSPLASIA
     Route: 050
     Dates: start: 202103, end: 202103

REACTIONS (6)
  - Respiratory failure [Fatal]
  - Cardiac murmur [Unknown]
  - Bronchopulmonary dysplasia [Fatal]
  - Patent ductus arteriosus [Fatal]
  - Premature baby [Fatal]
  - Cardiac disorder [Unknown]

NARRATIVE: CASE EVENT DATE: 2021
